FAERS Safety Report 8906492 (Version 1)
Quarter: 2012Q4

REPORT INFORMATION
  Report Type: Spontaneous
  Country: GB (occurrence: None)
  Receive Date: 20121108
  Receipt Date: 20121108
  Transmission Date: 20130627
  Serious: Yes (Hospitalization, Congenital Anomaly)
  Sender: FDA-Public Use
  Company Number: 2012MA013144

PATIENT
  Sex: Female

DRUGS (6)
  1. METFORMIN HYDROCHLORIDE [Suspect]
     Indication: TYPE II DIABETES MELLITUS
     Route: 064
     Dates: start: 20090709, end: 20100126
  2. RAMIPRIL [Suspect]
     Route: 064
     Dates: start: 20090709, end: 20100126
  3. METOPROLOL [Concomitant]
  4. METHYLDOPA [Concomitant]
  5. NOVORAPID [Concomitant]
  6. PROTAPHANE [Concomitant]

REACTIONS (14)
  - Maternal exposure during pregnancy [None]
  - Glycosylated haemoglobin increased [None]
  - Transposition of the great vessels [None]
  - Transaminases increased [None]
  - Platelet count decreased [None]
  - Caesarean section [None]
  - HELLP syndrome [None]
  - Aortic valve stenosis [None]
  - Mitral valve incompetence [None]
  - Patent ductus arteriosus [None]
  - Atrial septal defect [None]
  - Mitral valve incompetence [None]
  - Cardiac failure [None]
  - Pulmonary hypertension [None]
